FAERS Safety Report 5525868-7 (Version None)
Quarter: 2007Q4

REPORT INFORMATION
  Report Type: 
  Country: None (occurrence: None)
  Receive Date: 20071126
  Receipt Date: 20071029
  Transmission Date: 20080405
  Serious: No
  Sender: FDA-Public Use
  Company Number: GB-AVENTIS-200720072GDDC

PATIENT
  Age: 32 Year
  Sex: Female

DRUGS (5)
  1. ARAVA [Suspect]
     Indication: PSORIATIC ARTHROPATHY
     Route: 048
     Dates: start: 20061101
  2. METHOTREXATE [Concomitant]
     Indication: PSORIATIC ARTHROPATHY
     Route: 048
     Dates: start: 20021201
  3. FOLIC ACID [Concomitant]
     Indication: PSORIATIC ARTHROPATHY
     Route: 048
  4. DICLOFENAC SODIUM [Concomitant]
     Indication: PSORIATIC ARTHROPATHY
     Route: 048
  5. OMEPRAZOLE [Concomitant]
     Indication: PSORIATIC ARTHROPATHY
     Route: 048

REACTIONS (1)
  - ABORTION INDUCED [None]
